FAERS Safety Report 8164560-X (Version None)
Quarter: 2012Q1

REPORT INFORMATION
  Report Type: 
  Country: None (occurrence: None)
  Receive Date: 20120226
  Receipt Date: 20120217
  Transmission Date: 20120608
  Serious: Yes (Other)
  Sender: FDA-Public Use
  Company Number: MX-BRISTOL-MYERS SQUIBB COMPANY-16405607

PATIENT
  Sex: Male

DRUGS (1)
  1. ONGLYZA [Suspect]
     Route: 048
     Dates: start: 20100701

REACTIONS (1)
  - PANCREATIC CARCINOMA [None]
